FAERS Safety Report 9916380 (Version 2)
Quarter: 2014Q2

REPORT INFORMATION
  Report Type: Spontaneous
  Country: DE (occurrence: DE)
  Receive Date: 20140221
  Receipt Date: 20140527
  Transmission Date: 20141212
  Serious: Yes (Life-Threatening, Hospitalization)
  Sender: FDA-Public Use
  Company Number: DE-JNJFOC-20140209696

PATIENT
  Age: 43 Year
  Sex: Male
  Weight: 84 kg

DRUGS (5)
  1. YANTIL RETARD [Suspect]
     Indication: BACK PAIN
     Route: 048
     Dates: start: 20140125, end: 20140206
  2. YANTIL RETARD [Suspect]
     Indication: BACK PAIN
     Route: 048
  3. YANTIL RETARD [Suspect]
     Indication: PAIN
     Route: 048
  4. YANTIL RETARD [Suspect]
     Indication: PAIN
     Route: 048
     Dates: start: 20140125, end: 20140206
  5. DICLOFENAC [Concomitant]
     Indication: BACK PAIN
     Route: 065

REACTIONS (3)
  - Pelvic venous thrombosis [Recovered/Resolved with Sequelae]
  - Pulmonary embolism [Recovered/Resolved with Sequelae]
  - Infectious pleural effusion [None]
